FAERS Safety Report 8256542-4 (Version None)
Quarter: 2012Q1

REPORT INFORMATION
  Report Type: 
  Country: None (occurrence: None)
  Receive Date: 20120330
  Receipt Date: 20120320
  Transmission Date: 20120608
  Serious: Yes (Hospitalization)
  Sender: FDA-Public Use
  Company Number: 2012SP015730

PATIENT
  Age: 59 Year
  Sex: Male

DRUGS (2)
  1. CELESTONE [Suspect]
     Indication: PRODUCT USED FOR UNKNOWN INDICATION
  2. PHENYLBUTAZONE [Suspect]
     Indication: PRODUCT USED FOR UNKNOWN INDICATION
     Dosage: 100 MG

REACTIONS (2)
  - GASTROINTESTINAL HAEMORRHAGE [None]
  - ANAEMIA [None]
